FAERS Safety Report 9132052 (Version 1)
Quarter: 2013Q1

REPORT INFORMATION
  Report Type: Report from Study
  Country: US (occurrence: US)
  Receive Date: 20130301
  Receipt Date: 20130301
  Transmission Date: 20140127
  Serious: No
  Sender: FDA-Public Use
  Company Number: US-MYLANLABS-2012S1001726

PATIENT
  Age: 51 Year
  Sex: Female
  Weight: 72.58 kg

DRUGS (2)
  1. AMNESTEEM CAPSULES [Suspect]
     Indication: GRANULOMA ANNULARE
     Route: 048
     Dates: start: 20111108, end: 20120109
  2. HMG COA REDUCTASE INHIBITORS [Concomitant]
     Dates: start: 20111108, end: 20120109

REACTIONS (3)
  - Drug intolerance [Unknown]
  - Granuloma annulare [Unknown]
  - Rash [Unknown]
